FAERS Safety Report 15003781 (Version 1)
Quarter: 2018Q2

REPORT INFORMATION
  Report Type: Spontaneous
  Country: DE (occurrence: DE)
  Receive Date: 20180613
  Receipt Date: 20180613
  Transmission Date: 20180711
  Serious: Yes (Hospitalization)
  Sender: FDA-Public Use
  Company Number: DE-TEVA-2018-DE-903966

PATIENT
  Age: 89 Year
  Sex: Female
  Weight: 80 kg

DRUGS (8)
  1. PANTOPRAZOL [Concomitant]
     Active Substance: PANTOPRAZOLE SODIUM
     Dosage: 0-0-1-0
     Route: 048
  2. TORASEMID [Concomitant]
     Active Substance: TORSEMIDE
     Dosage: 0.5-0-0-0
     Route: 048
  3. METOPROLOL. [Suspect]
     Active Substance: METOPROLOL
     Dosage: 0.5-0-0.5-0
     Route: 048
  4. HYDROCHLOROTHIAZID [Concomitant]
     Active Substance: HYDROCHLOROTHIAZIDE
     Dosage: 5|25 MG, 0.5-0-0-0
     Route: 048
  5. PHENPROCOUMON [Concomitant]
     Active Substance: PHENPROCOUMON
     Route: 065
  6. SIMVASTATIN. [Concomitant]
     Active Substance: SIMVASTATIN
     Dosage: 0-0-1-0
     Route: 048
  7. KALIUMCHLORID [Concomitant]
     Active Substance: POTASSIUM CHLORIDE
     Dosage: 1-0-0-0
     Route: 048
  8. LEVOTHYROXIN [Concomitant]
     Active Substance: LEVOTHYROXINE
     Dosage: 1-0-0-0
     Route: 048

REACTIONS (2)
  - Drug prescribing error [Unknown]
  - Atrial fibrillation [Unknown]

NARRATIVE: CASE EVENT DATE: 20151124
